FAERS Safety Report 7376264-1 (Version None)
Quarter: 2011Q1

REPORT INFORMATION
  Report Type: 
  Country: None (occurrence: None)
  Receive Date: 20110325
  Receipt Date: 20110322
  Transmission Date: 20110831
  Serious: Yes (Death, Hospitalization)
  Sender: FDA-Public Use
  Company Number: BE-ROCHE-719759

PATIENT
  Sex: Female
  Weight: 63 kg

DRUGS (4)
  1. BEVACIZUMAB [Suspect]
     Dosage: PERMANENTLY INTERRUPTED.
     Route: 042
     Dates: start: 20100714, end: 20100804
  2. PACLITAXEL [Suspect]
     Dosage: DAYS 1, 8, 15 AND 22
     Route: 042
  3. DOXORUBICIN HCL [Suspect]
     Dosage: LAST DOSE PRIOR TO SAE: 12 AUGUST 2010. FREQUENCY: 4 WEEKLY.DRUG REPORTED : CAELYX
     Route: 042
     Dates: start: 20100714, end: 20100907
  4. TOPOTECAN [Suspect]
     Dosage: DAYS 1-5
     Route: 042

REACTIONS (2)
  - SMALL INTESTINAL OBSTRUCTION [None]
  - GENERAL PHYSICAL HEALTH DETERIORATION [None]
